FAERS Safety Report 19429734 (Version 4)
Quarter: 2021Q3

REPORT INFORMATION
  Report Type: Report from Study
  Country: GB (occurrence: GB)
  Receive Date: 20210617
  Receipt Date: 20210728
  Transmission Date: 20211014
  Serious: Yes (Hospitalization, Other)
  Sender: FDA-Public Use
  Company Number: GB-BRISTOL-MYERS SQUIBB COMPANY-BMS-2021-052551

PATIENT
  Age: 38 Year
  Sex: Female
  Weight: 53.7 kg

DRUGS (4)
  1. NIVOLUMAB [Suspect]
     Active Substance: NIVOLUMAB
     Indication: METASTATIC MALIGNANT MELANOMA
     Dosage: SCHEDULED 3 MG/KG Q3W (FIRST 4 INJECTION); ACTUAL DOSE GIVEN (AT LAST ADMINISTRATION) WAS 160 MG
     Route: 042
     Dates: start: 20210308, end: 20210702
  2. ASTRAZENECA COVID?19 VACCINE [Suspect]
     Active Substance: AZD-1222
     Indication: PROPHYLAXIS
     Dosage: 0.5 ML, 1X1 TOTAL
     Route: 030
     Dates: start: 20210324, end: 20210324
  3. ASTRAZENECA COVID?19 VACCINE [Suspect]
     Active Substance: AZD-1222
     Dosage: 0.5 ML, 1X1 TOTAL
     Route: 030
     Dates: start: 20210520, end: 20210520
  4. IPILIMUMAB [Suspect]
     Active Substance: IPILIMUMAB
     Indication: METASTATIC MALIGNANT MELANOMA
     Dosage: 52.50 MILLIGRAM, Q3WK
     Route: 042
     Dates: start: 20210308, end: 20210702

REACTIONS (2)
  - Immune-mediated hepatitis [Recovering/Resolving]
  - Cytokine release syndrome [Recovered/Resolved]

NARRATIVE: CASE EVENT DATE: 20210528
